FAERS Safety Report 4419604-5 (Version None)
Quarter: 2004Q3

REPORT INFORMATION
  Report Type: 
  Country: None (occurrence: None)
  Receive Date: 20040809
  Receipt Date: 20040225
  Transmission Date: 20050211
  Serious: No
  Sender: FDA-Public Use
  Company Number: US-GLAXOSMITHKLINE-A0499866A

PATIENT
  Age: 23 Year
  Sex: Male

DRUGS (1)
  1. PAXIL [Suspect]
     Dosage: 20MG PER DAY
     Route: 048
     Dates: start: 20020501, end: 20040222

REACTIONS (3)
  - DIZZINESS [None]
  - ELECTRIC SHOCK [None]
  - NAUSEA [None]
